FAERS Safety Report 15504661 (Version 1)
Quarter: 2018Q4

REPORT INFORMATION
  Report Type: Spontaneous
  Country: US (occurrence: US)
  Receive Date: 20181016
  Receipt Date: 20181016
  Transmission Date: 20190205
  Serious: No
  Sender: FDA-Public Use
  Company Number: US-SA-2018SA285143

PATIENT
  Sex: Female

DRUGS (14)
  1. PERCOCET [Concomitant]
     Active Substance: ACETAMINOPHEN\OXYCODONE HYDROCHLORIDE
  2. SUMATRIPTAN. [Concomitant]
     Active Substance: SUMATRIPTAN
  3. LYRICA [Concomitant]
     Active Substance: PREGABALIN
  4. KLONOPIN [Concomitant]
     Active Substance: CLONAZEPAM
  5. VISTARIL [HYDROXYZINE EMBONATE] [Concomitant]
  6. LUNESTA [Concomitant]
     Active Substance: ESZOPICLONE
  7. PAXIL [PAROXETINE HYDROCHLORIDE] [Concomitant]
  8. ABILIFY [Concomitant]
     Active Substance: ARIPIPRAZOLE
  9. LISINOPRIL. [Concomitant]
     Active Substance: LISINOPRIL
  10. AUBAGIO [Suspect]
     Active Substance: TERIFLUNOMIDE
     Dosage: 14 MG, QD
     Route: 048
     Dates: start: 201511
  11. TECFIDERA [Concomitant]
     Active Substance: DIMETHYL FUMARATE
  12. ASPIRIN 81 [Concomitant]
     Active Substance: ASPIRIN
  13. PRILOSEC [OMEPRAZOLE MAGNESIUM] [Concomitant]
  14. DEXTROAMPHETAMINE [DEXAMFETAMINE] [Concomitant]

REACTIONS (1)
  - Depression [Not Recovered/Not Resolved]
